FAERS Safety Report 8341115-5 (Version None)
Quarter: 2012Q2

REPORT INFORMATION
  Report Type: 
  Country: None (occurrence: None)
  Receive Date: 20120507
  Receipt Date: 20120426
  Transmission Date: 20120825
  Serious: Yes (Hospitalization)
  Sender: FDA-Public Use
  Company Number: US-GLAXOSMITHKLINE-B0700265A

PATIENT
  Age: 58 Year
  Sex: Female
  Weight: 124.1 kg

DRUGS (1)
  1. AVANDIA [Suspect]
     Indication: DIABETES MELLITUS
     Route: 048
     Dates: end: 20071201

REACTIONS (2)
  - DEPENDENCE ON RESPIRATOR [None]
  - CARDIAC FAILURE CONGESTIVE [None]
